FAERS Safety Report 10158659 (Version 2)
Quarter: 2014Q2

REPORT INFORMATION
  Report Type: Spontaneous
  Country: FR (occurrence: FR)
  Receive Date: 20140508
  Receipt Date: 20140604
  Transmission Date: 20141212
  Serious: Yes (Life-Threatening)
  Sender: FDA-Public Use
  Company Number: FR-ROCHE-1397311

PATIENT
  Age: 79 Year
  Sex: Female

DRUGS (12)
  1. MABTHERA [Suspect]
     Indication: RHEUMATOID ARTHRITIS
     Dosage: LAST COURSE WAS ON 30/OCT/2013
     Route: 041
     Dates: start: 2006
  2. METOJECT [Suspect]
     Indication: RHEUMATOID ARTHRITIS
     Route: 048
     Dates: end: 20140429
  3. INNOHEP [Suspect]
     Indication: PULMONARY EMBOLISM
     Route: 058
     Dates: start: 201403, end: 20140429
  4. ROACTEMRA [Concomitant]
     Route: 065
     Dates: start: 20140512
  5. SPECIAFOLDINE [Concomitant]
  6. CORTANCYL [Concomitant]
  7. KARDEGIC [Concomitant]
  8. DOLIPRANE [Concomitant]
  9. SPIRONOLACTONE [Concomitant]
  10. RAMIPRIL [Concomitant]
  11. FORLAX [Concomitant]
  12. ACLASTA [Concomitant]
     Dosage: 3 INFUSION RECEIVED
     Route: 065

REACTIONS (2)
  - Agranulocytosis [Recovered/Resolved]
  - Bone marrow failure [Recovered/Resolved]
